FAERS Safety Report 9663043 (Version 2)
Quarter: 2013Q4

REPORT INFORMATION
  Report Type: Report from Study
  Country: US (occurrence: US)
  Receive Date: 20131031
  Receipt Date: 20131031
  Transmission Date: 20140711
  Serious: Yes (Life-Threatening, Hospitalization)
  Sender: FDA-Public Use
  Company Number: US-009507513-1207USA006436

PATIENT
  Age: 79 Year
  Sex: Male
  Weight: 61 kg

DRUGS (16)
  1. BLINDED CARBOPLATIN [Suspect]
     Indication: NON-SMALL CELL LUNG CANCER
     Dosage: 800 MG, QD, ON DAYS -2 TO +2
     Route: 048
     Dates: start: 20120613
  2. BLINDED PACLITAXEL [Suspect]
     Indication: NON-SMALL CELL LUNG CANCER
     Dosage: 800 MG, QD, ON DAYS -2 TO +2
     Route: 048
     Dates: start: 20120613
  3. BLINDED PLACEBO [Suspect]
     Indication: NON-SMALL CELL LUNG CANCER
     Dosage: 800 MG, QD, ON DAYS -2 TO +2
     Route: 048
     Dates: start: 20120613
  4. BLINDED POST TRIAL THERAPY [Suspect]
     Indication: NON-SMALL CELL LUNG CANCER
     Dosage: 800 MG, QD, ON DAYS -2 TO +2
     Route: 048
     Dates: start: 20120613
  5. BLINDED PRE TRIAL THERAPY [Suspect]
     Indication: NON-SMALL CELL LUNG CANCER
     Dosage: 800 MG, QD, ON DAYS -2 TO +2
     Route: 048
     Dates: start: 20120613
  6. BLINDED VORINOSTAT [Suspect]
     Indication: NON-SMALL CELL LUNG CANCER
     Dosage: 800 MG, QD, ON DAYS -2 TO +2
     Route: 048
     Dates: start: 20120613
  7. BLINDED CARBOPLATIN [Suspect]
     Dosage: UNK
     Route: 048
     Dates: start: 20120703, end: 20120707
  8. BLINDED PACLITAXEL [Suspect]
     Dosage: UNK
     Route: 048
     Dates: start: 20120703, end: 20120707
  9. BLINDED PLACEBO [Suspect]
     Dosage: UNK
     Route: 048
     Dates: start: 20120703, end: 20120707
  10. BLINDED POST TRIAL THERAPY [Suspect]
     Dosage: UNK
     Route: 048
     Dates: start: 20120703, end: 20120707
  11. BLINDED PRE TRIAL THERAPY [Suspect]
     Dosage: UNK
     Route: 048
     Dates: start: 20120703, end: 20120707
  12. BLINDED VORINOSTAT [Suspect]
     Dosage: UNK
     Route: 048
     Dates: start: 20120703, end: 20120707
  13. CARBOPLATIN [Suspect]
     Indication: NON-SMALL CELL LUNG CANCER
     Dosage: 6 MG/ML OVER 30 MINUTES
     Route: 042
     Dates: start: 20120613
  14. CARBOPLATIN [Suspect]
     Dosage: UNK
     Route: 042
     Dates: start: 20120703, end: 20120705
  15. PACLITAXEL [Suspect]
     Indication: NON-SMALL CELL LUNG CANCER
     Dosage: 200 MG/M2, ONCE
     Route: 042
     Dates: start: 20120612
  16. PACLITAXEL [Suspect]
     Dosage: UNK
     Route: 042
     Dates: start: 20120703, end: 20120705

REACTIONS (4)
  - Dehydration [Recovered/Resolved]
  - Neutrophil count decreased [Not Recovered/Not Resolved]
  - White blood cell count decreased [Not Recovered/Not Resolved]
  - Dehydration [Not Recovered/Not Resolved]
